FAERS Safety Report 12525685 (Version 2)
Quarter: 2016Q3

REPORT INFORMATION
  Report Type: Report from Study
  Country: US (occurrence: US)
  Receive Date: 20160705
  Receipt Date: 20160808
  Transmission Date: 20161109
  Serious: Yes (Hospitalization)
  Sender: FDA-Public Use
  Company Number: US-ASTRAZENECA-2016SE59377

PATIENT
  Age: 294 Day
  Sex: Female
  Weight: 9 kg

DRUGS (8)
  1. D-FLUORETTEN [Concomitant]
     Indication: PRODUCT USED FOR UNKNOWN INDICATION
     Route: 065
  2. ASPIRIN. [Concomitant]
     Active Substance: ASPIRIN
     Indication: PRODUCT USED FOR UNKNOWN INDICATION
     Route: 065
  3. SALBUTAMOL [Concomitant]
     Active Substance: ALBUTEROL
     Indication: PRODUCT USED FOR UNKNOWN INDICATION
     Dosage: 3 DROPS IN 2 L SODIUM CHLORIDE 0.9%
     Route: 055
  4. MONTELUKAST [Concomitant]
     Active Substance: MONTELUKAST SODIUM
     Indication: PRODUCT USED FOR UNKNOWN INDICATION
     Route: 065
  5. SYNAGIS [Suspect]
     Active Substance: PALIVIZUMAB
     Indication: PREMATURE BABY
     Route: 030
     Dates: start: 20151001, end: 20151001
  6. SILDENAFIL. [Concomitant]
     Active Substance: SILDENAFIL
     Indication: PRODUCT USED FOR UNKNOWN INDICATION
     Route: 065
  7. OMEPRAZOL [Concomitant]
     Active Substance: OMEPRAZOLE
     Indication: PRODUCT USED FOR UNKNOWN INDICATION
     Route: 065
  8. OXYGEN. [Concomitant]
     Active Substance: OXYGEN
     Indication: PRODUCT USED FOR UNKNOWN INDICATION
     Dosage: 1   1/MIN

REACTIONS (23)
  - Tachypnoea [Recovered/Resolved]
  - Pneumonia [Recovered/Resolved]
  - Oxygen consumption increased [Unknown]
  - Obstruction [Recovering/Resolving]
  - Lung hyperinflation [Unknown]
  - Lower respiratory tract infection [Recovered/Resolved]
  - Bronchitis [Unknown]
  - Lung infiltration [Unknown]
  - Intestinal dilatation [Unknown]
  - Upper respiratory tract infection [Recovered/Resolved]
  - Bronchitis [Recovered/Resolved]
  - Fluid overload [Recovered/Resolved]
  - Gastroenteritis [Recovered/Resolved]
  - General physical health deterioration [Recovered/Resolved]
  - Dyspnoea [Recovering/Resolving]
  - Viral infection [Unknown]
  - Flatulence [Unknown]
  - Enterovirus infection [Recovered/Resolved]
  - Pneumonia [Recovered/Resolved]
  - Respiratory disorder [Unknown]
  - Respiratory fatigue [Unknown]
  - General physical health deterioration [Recovering/Resolving]
  - Pyrexia [Recovered/Resolved]

NARRATIVE: CASE EVENT DATE: 20151123
